FAERS Safety Report 8203072-1 (Version None)
Quarter: 2012Q1

REPORT INFORMATION
  Report Type: 
  Country: None (occurrence: None)
  Receive Date: 20120312
  Receipt Date: 20120308
  Transmission Date: 20120608
  Serious: Yes (Life-Threatening, Hospitalization, Other)
  Sender: FDA-Public Use
  Company Number: US-GILEAD-2012-0050340

PATIENT
  Sex: Male

DRUGS (3)
  1. SIMVASTATIN [Concomitant]
     Indication: HYPERLIPIDAEMIA
  2. COMPLERA [Suspect]
     Indication: HIV INFECTION
     Dosage: 1 DF, QD
     Route: 048
     Dates: start: 20110908, end: 20120124
  3. CARVEDILOL [Concomitant]
     Indication: HYPERTENSION

REACTIONS (4)
  - PRURITUS [None]
  - RASH [None]
  - ACUTE HEPATIC FAILURE [None]
  - HEPATITIS [None]
